FAERS Safety Report 24910942 (Version 1)
Quarter: 2025Q1

REPORT INFORMATION
  Report Type: Spontaneous
  Country: US (occurrence: None)
  Receive Date: 20250130
  Receipt Date: 20250130
  Transmission Date: 20250409
  Serious: Yes (Hospitalization)
  Sender: FDA-CTU
  Company Number: None

PATIENT
  Age: 44 Year
  Sex: Female
  Weight: 57.15 kg

DRUGS (12)
  1. VERZENIO [Suspect]
     Active Substance: ABEMACICLIB
     Indication: Neoplasm malignant
     Dosage: FREQUENCY : AT BEDTIME;?
     Route: 048
  2. VERZENIO [Suspect]
     Active Substance: ABEMACICLIB
     Indication: Neoplasm prophylaxis
  3. SYNTHROID [Concomitant]
     Active Substance: LEVOTHYROXINE SODIUM
  4. OMEPRAZOLE [Concomitant]
     Active Substance: OMEPRAZOLE
  5. LUPRON [Concomitant]
     Active Substance: LEUPROLIDE ACETATE
  6. ANASTROZOLE [Concomitant]
     Active Substance: ANASTROZOLE
  7. AIRBORNE [Concomitant]
     Active Substance: HERBALS\MINERALS\VITAMINS
  8. VITAMIN D3 [Concomitant]
     Active Substance: CHOLECALCIFEROL
  9. IRON [Concomitant]
     Active Substance: IRON
  10. CALCIUM [Concomitant]
     Active Substance: CALCIUM
  11. BIOTIN [Concomitant]
     Active Substance: BIOTIN
  12. B12 [Concomitant]

REACTIONS (10)
  - Fatigue [None]
  - Fatigue [None]
  - Diarrhoea [None]
  - Muscle spasms [None]
  - Pain [None]
  - Amnesia [None]
  - Fall [None]
  - Head injury [None]
  - Tooth fracture [None]
  - Product advertising issue [None]

NARRATIVE: CASE EVENT DATE: 20250127
